FAERS Safety Report 5708969-X (Version None)
Quarter: 2008Q2

REPORT INFORMATION
  Report Type: 
  Country: None (occurrence: None)
  Receive Date: 20080414
  Receipt Date: 20080414
  Transmission Date: 20081010
  Serious: No
  Sender: FDA-Public Use
  Company Number: None

PATIENT
  Age: 82 Year
  Sex: Male

DRUGS (1)
  1. ISOVUE-300 [Suspect]
     Indication: SCAN WITH CONTRAST
     Dosage: 125CC ONCE IV
     Route: 042
     Dates: start: 20080203, end: 20080203

REACTIONS (2)
  - ASTHENIA [None]
  - FLUSHING [None]
